FAERS Safety Report 25716032 (Version 1)
Quarter: 2025Q3

REPORT INFORMATION
  Report Type: Spontaneous
  Country: TW (occurrence: TW)
  Receive Date: 20250822
  Receipt Date: 20250822
  Transmission Date: 20251021
  Serious: Yes (Other)
  Sender: RANBAXY
  Company Number: TW-SUN PHARMACEUTICAL INDUSTRIES LTD-2025R1-523731

PATIENT
  Age: 82 Year
  Sex: Female

DRUGS (2)
  1. PREDNISOLONE [Suspect]
     Active Substance: PREDNISOLONE
     Indication: Cystoid macular oedema
     Route: 061
  2. IBUPROFEN [Suspect]
     Active Substance: IBUPROFEN
     Indication: Cystoid macular oedema
     Route: 048

REACTIONS (1)
  - Treatment failure [Unknown]
